FAERS Safety Report 4865065-1 (Version None)
Quarter: 2005Q4

REPORT INFORMATION
  Report Type: 
  Country: None (occurrence: None)
  Receive Date: 20051220
  Receipt Date: 20051220
  Transmission Date: 20060501
  Serious: Yes (Other)
  Sender: FDA-Public Use
  Company Number: None

PATIENT
  Age: 44 Year
  Sex: Female
  Weight: 58.9676 kg

DRUGS (3)
  1. NIZATIDINE [Suspect]
     Indication: GASTRITIS
     Dosage: 150 MG TWICE DAILY PO
     Route: 048
     Dates: start: 20050729, end: 20051209
  2. NIZATIDINE [Suspect]
     Indication: GASTROOESOPHAGEAL REFLUX DISEASE
     Dosage: 150 MG TWICE DAILY PO
     Route: 048
     Dates: start: 20050729, end: 20051209
  3. NIZATIDINE [Suspect]

REACTIONS (4)
  - DIARRHOEA [None]
  - PHARMACEUTICAL PRODUCT COMPLAINT [None]
  - SKIN ULCER [None]
  - THERAPEUTIC RESPONSE UNEXPECTED WITH DRUG SUBSTITUTION [None]
